FAERS Safety Report 5040838-3 (Version None)
Quarter: 2006Q2

REPORT INFORMATION
  Report Type: 
  Country: None (occurrence: None)
  Receive Date: 20060601
  Receipt Date: 20060303
  Transmission Date: 20061013
  Serious: No
  Sender: FDA-Public Use
  Company Number: 2006PV009625

PATIENT
  Age: 61 Year
  Sex: Female
  Weight: 110.2241 kg

DRUGS (4)
  1. BYETTA [Suspect]
     Indication: DIABETES MELLITUS NON-INSULIN-DEPENDENT
     Dosage: 5 MCG;BID;SC
     Route: 058
     Dates: start: 20060216
  2. GLUCOTROL XL [Concomitant]
  3. AVANDIA [Concomitant]
  4. BLOOD THINNERS [Concomitant]

REACTIONS (6)
  - ANOREXIA [None]
  - DIARRHOEA [None]
  - ERUCTATION [None]
  - FATIGUE [None]
  - INJECTION SITE BRUISING [None]
  - NAUSEA [None]
